FAERS Safety Report 15975376 (Version 2)
Quarter: 2019Q1

REPORT INFORMATION
  Report Type: Spontaneous
  Country: JP (occurrence: JP)
  Receive Date: 20190218
  Receipt Date: 20190307
  Transmission Date: 20190418
  Serious: Yes (Hospitalization)
  Sender: FDA-Public Use
  Company Number: JP-TEVA-2019-JP-1014238

PATIENT
  Age: 88 Year
  Sex: Female

DRUGS (2)
  1. TOLEDOMIN [Interacting]
     Active Substance: MILNACIPRAN HYDROCHLORIDE
     Indication: PRODUCT USED FOR UNKNOWN INDICATION
     Route: 065
  2. AZILECT [Suspect]
     Active Substance: RASAGILINE MESYLATE
     Indication: PARKINSON^S DISEASE
     Route: 048

REACTIONS (4)
  - Malaise [Unknown]
  - Labelled drug-drug interaction medication error [Unknown]
  - Contraindicated product prescribed [Unknown]
  - Hospitalisation [Unknown]

NARRATIVE: CASE EVENT DATE: 201902
